FAERS Safety Report 6373057 (Version 1)
Quarter: 2020Q3

REPORT INFORMATION
  Report Type: Spontaneous
  Country: DE (occurrence: DE)
  Receive Date: 20070801
  Receipt Date: 20070801
  Transmission Date: 20201104
  Serious: Yes (Other)
  Sender: FDA-Public Use
  Company Number: DE-ROCHE-508836

PATIENT
  Age: 80 Year
  Sex: Female

DRUGS (9)
  1. CAPTOPRIL. [Concomitant]
     Active Substance: CAPTOPRIL
  2. TORSEMIDE. [Concomitant]
     Active Substance: TORSEMIDE
  3. CALCIUM CARBONATE. [Concomitant]
     Active Substance: CALCIUM CARBONATE
     Dosage: DRUG REPORTED AS ^IDEOS KT^.
  4. BELOC ZOK (METOPROLOL SUCCINATE) [Concomitant]
     Active Substance: METOPROLOL SUCCINATE
  5. IBANDRONIC ACID. [Suspect]
     Active Substance: IBANDRONIC ACID
     Indication: PLASMACYTOMA
     Route: 065
     Dates: start: 200606
  6. NEXIUM [Concomitant]
     Active Substance: ESOMEPRAZOLE MAGNESIUM
  7. DEXAMETHASONE. [Concomitant]
     Active Substance: DEXAMETHASONE
     Dosage: THERAPY DATES: JULY ? OCTOBER 2006 AND FROM FEBRUARY 2007.
     Dates: start: 200407
  8. SPASMEX (TROSPIUM CHLORIDE) [Concomitant]
     Active Substance: TROSPIUM CHLORIDE
  9. ZOMETA [Suspect]
     Active Substance: ZOLEDRONIC ACID
     Indication: PLASMACYTOMA
     Route: 065
     Dates: start: 2004

REACTIONS (1)
  - Osteonecrosis [Not Recovered/Not Resolved]
